FAERS Safety Report 6159753-7 (Version None)
Quarter: 2009Q2

REPORT INFORMATION
  Report Type: 
  Country: None (occurrence: None)
  Receive Date: 20090420
  Receipt Date: 20090410
  Transmission Date: 20091009
  Serious: Yes (Hospitalization)
  Sender: FDA-Public Use
  Company Number: US-BIOGENIDEC-2009BI003643

PATIENT
  Age: 50 Year
  Sex: Female

DRUGS (1)
  1. AVONEX [Suspect]
     Indication: MULTIPLE SCLEROSIS
     Route: 030
     Dates: start: 20080418

REACTIONS (5)
  - CHEST PAIN [None]
  - HYSTERECTOMY [None]
  - OEDEMA PERIPHERAL [None]
  - SKIN CANCER [None]
  - SKIN INFECTION [None]
